FAERS Safety Report 7497029-6 (Version None)
Quarter: 2011Q2

REPORT INFORMATION
  Report Type: 
  Country: None (occurrence: None)
  Receive Date: 20110523
  Receipt Date: 20110519
  Transmission Date: 20111010
  Serious: Yes (Hospitalization)
  Sender: FDA-Public Use
  Company Number: PHHO2006CA19418

PATIENT
  Sex: Male

DRUGS (3)
  1. EVEROLIMUS [Suspect]
     Indication: TRANSPLANT
     Dosage: 1 MG, BID
     Route: 048
     Dates: start: 20060713
  2. NEORAL [Suspect]
     Route: 048
  3. EVEROLIMUS [Suspect]
     Dosage: 0.75 MG, BID
     Route: 048

REACTIONS (6)
  - RENAL IMPAIRMENT [None]
  - ANAEMIA [None]
  - MALAISE [None]
  - ASTHENIA [None]
  - DYSPNOEA [None]
  - FATIGUE [None]
